FAERS Safety Report 4366384-8 (Version None)
Quarter: 2004Q2

REPORT INFORMATION
  Report Type: 
  Country: None (occurrence: None)
  Receive Date: 20040526
  Receipt Date: 20040526
  Transmission Date: 20050107
  Serious: Yes (Hospitalization)
  Sender: FDA-Public Use
  Company Number: None

PATIENT
  Sex: Male
  Weight: 74 kg

DRUGS (14)
  1. ZOMETA [Suspect]
     Indication: PROSTATE CANCER
     Dosage: 4 MG
     Dates: start: 20031023
  2. LUPRON [Suspect]
     Indication: PROSTATE CANCER
     Dosage: 22.5 MG
     Dates: start: 20031031
  3. LUPRON [Suspect]
     Indication: PROSTATE CANCER
     Dosage: 22.5 MG
     Dates: start: 20040115
  4. LUPRON [Suspect]
     Indication: PROSTATE CANCER
     Dosage: 22.5 MG
     Dates: start: 20040412
  5. PREDNISONE [Concomitant]
  6. PANTOPRAZOLE [Concomitant]
  7. CASODEX [Concomitant]
  8. DOCUSATE/SENNA [Concomitant]
  9. METOPROLOL TARTRATE [Concomitant]
  10. MOM [Concomitant]
  11. OXYCODONE [Concomitant]
  12. OXYCONTIN [Concomitant]
  13. NITRO PATCH [Concomitant]
  14. COMPAZINE [Concomitant]

REACTIONS (2)
  - NAUSEA [None]
  - VOMITING [None]
